FAERS Safety Report 5405049-8 (Version None)
Quarter: 2007Q3

REPORT INFORMATION
  Report Type: 
  Country: None (occurrence: None)
  Receive Date: 20070801
  Receipt Date: 20070725
  Transmission Date: 20080115
  Serious: Yes (Hospitalization)
  Sender: FDA-Public Use
  Company Number: 2007BI014052

PATIENT
  Age: 55 Year
  Sex: Male
  Weight: 100.2449 kg

DRUGS (11)
  1. AVONEX [Suspect]
     Indication: MULTIPLE SCLEROSIS
     Dosage: 30 UG;QW;IM
     Route: 030
     Dates: start: 20050610, end: 20070705
  2. WELLBUTRIN SR [Concomitant]
  3. LEXAPRO [Concomitant]
  4. METOPROLOL SUCCINATE [Concomitant]
  5. LISINOPRIL [Concomitant]
  6. BACLOFEN [Concomitant]
  7. ZANAFLEX [Concomitant]
  8. NEXIUM [Concomitant]
  9. ANDROGEL [Concomitant]
  10. PLAVIX [Concomitant]
  11. ASPIRIN [Concomitant]

REACTIONS (8)
  - ABASIA [None]
  - ASTHENIA [None]
  - CONDITION AGGRAVATED [None]
  - DYSPNOEA [None]
  - MULTIPLE SCLEROSIS [None]
  - MYOCARDIAL INFARCTION [None]
  - OEDEMA PERIPHERAL [None]
  - PAIN IN EXTREMITY [None]
